FAERS Safety Report 8502076-9 (Version None)
Quarter: 2012Q3

REPORT INFORMATION
  Report Type: 
  Country: None (occurrence: None)
  Receive Date: 20120711
  Receipt Date: 20120622
  Transmission Date: 20120928
  Serious: Yes (Other)
  Sender: FDA-Public Use
  Company Number: JP-JNJFOC-20120305732

PATIENT
  Sex: Male
  Weight: 62 kg

DRUGS (5)
  1. BIO-THREE [Concomitant]
     Indication: COLITIS ULCERATIVE
     Route: 048
  2. FERROUS CITRATE [Concomitant]
     Indication: COLITIS ULCERATIVE
     Dosage: DOSE: 100 DF
     Route: 048
  3. REMICADE [Suspect]
     Indication: COLITIS ULCERATIVE
     Route: 042
     Dates: start: 20100720
  4. PENTASA [Concomitant]
     Indication: COLITIS ULCERATIVE
     Dosage: DOSE: 4000DF
     Route: 048
  5. REMICADE [Suspect]
     Dosage: 4TH DOSE.
     Route: 042
     Dates: start: 20101012

REACTIONS (5)
  - PNEUMONIA [None]
  - HAEMATOCHEZIA [None]
  - FREQUENT BOWEL MOVEMENTS [None]
  - ABDOMINAL PAIN [None]
  - DECREASED APPETITE [None]
